FAERS Safety Report 5682138-4 (Version None)
Quarter: 2008Q1

REPORT INFORMATION
  Report Type: 
  Country: None (occurrence: None)
  Receive Date: 20080327
  Receipt Date: 20080317
  Transmission Date: 20080703
  Serious: Yes (Death)
  Sender: FDA-Public Use
  Company Number: GB-RANBAXY-2008RR-13846

PATIENT

DRUGS (9)
  1. OMEPRAZOLE [Suspect]
     Indication: GASTROINTESTINAL DISORDER
     Dosage: 20 MG, QD
     Route: 048
  2. SIMVASTATIN [Suspect]
     Dosage: 40 MG, QD
     Route: 048
  3. ADALAT [Concomitant]
     Dosage: 20 MG, QD
  4. ASPIRIN [Concomitant]
     Dosage: 75 MG, QD
  5. DIPYRIDAMOLE [Concomitant]
     Dosage: 200 MG, BID
  6. GAVISCON [Concomitant]
     Dosage: 10 ML, TID
  7. METOPROLOL TARTRATE [Concomitant]
     Dosage: 100 MG, BID
  8. ACETAMINOPHEN [Concomitant]
     Dosage: 1 G, QID
  9. PERINDOPRIL [Concomitant]
     Dosage: 4 MG, QD

REACTIONS (1)
  - DYSPHAGIA [None]
